FAERS Safety Report 7620303-7 (Version None)
Quarter: 2011Q3

REPORT INFORMATION
  Report Type: 
  Country: None (occurrence: None)
  Receive Date: 20110719
  Receipt Date: 20110705
  Transmission Date: 20111222
  Serious: Yes (Hospitalization)
  Sender: FDA-Public Use
  Company Number: JP-JNJFOC-20110606713

PATIENT
  Sex: Male

DRUGS (15)
  1. ZOLPIDEM [Suspect]
     Indication: INSOMNIA
     Route: 048
  2. SELBEX [Suspect]
     Indication: GASTRITIS
     Route: 048
  3. TRAMADOL HCL [Suspect]
     Indication: PAIN
     Route: 048
     Dates: start: 20110421, end: 20110505
  4. TRAMADOL HCL [Suspect]
     Route: 048
     Dates: start: 20110506, end: 20110511
  5. ALPRAZOLAM [Interacting]
     Indication: INSOMNIA
     Route: 048
  6. LYRICA [Suspect]
     Indication: PAIN
     Route: 048
     Dates: start: 20110331, end: 20110606
  7. ALINAMIN F [Suspect]
     Indication: VITAMIN SUPPLEMENTATION
     Route: 048
  8. TRAMADOL HCL [Suspect]
     Route: 048
     Dates: start: 20110526, end: 20110606
  9. PRORENAL [Suspect]
     Indication: PAIN
     Route: 048
  10. VOLTAREN [Suspect]
     Indication: PAIN
     Route: 048
     Dates: end: 20110606
  11. MAGNESIUM SULFATE [Suspect]
     Indication: CONSTIPATION
     Route: 048
     Dates: start: 20110512, end: 20110606
  12. ASPIRIN [Suspect]
     Indication: THROMBOSIS PROPHYLAXIS
     Route: 048
  13. TRAMADOL HCL [Suspect]
     Route: 048
     Dates: start: 20110512, end: 20110525
  14. GASMOTIN [Suspect]
     Indication: GASTRITIS
     Route: 048
     Dates: end: 20110606
  15. LIPITOR [Suspect]
     Indication: DYSLIPIDAEMIA
     Route: 048

REACTIONS (3)
  - INTERSTITIAL LUNG DISEASE [None]
  - DRUG INTERACTION [None]
  - LOSS OF CONSCIOUSNESS [None]
